FAERS Safety Report 4639900-6 (Version None)
Quarter: 2005Q2

REPORT INFORMATION
  Report Type: 
  Country: None (occurrence: None)
  Receive Date: 20050328
  Receipt Date: 20050107
  Transmission Date: 20051028
  Serious: No
  Sender: FDA-Public Use
  Company Number: USA050187756

PATIENT
  Age: 9 Year
  Sex: Female
  Weight: 41 kg

DRUGS (1)
  1. STRATTERA [Suspect]
     Dosage: 50 MG DAY
     Dates: start: 20040101

REACTIONS (2)
  - ABDOMINAL PAIN UPPER [None]
  - URINARY TRACT INFECTION [None]
